FAERS Safety Report 5279083-5 (Version None)
Quarter: 2007Q1

REPORT INFORMATION
  Report Type: 
  Country: None (occurrence: None)
  Receive Date: 20070327
  Receipt Date: 20070327
  Transmission Date: 20070707
  Serious: Yes (Other)
  Sender: FDA-Public Use
  Company Number: None

PATIENT
  Sex: Female
  Weight: 76.6579 kg

DRUGS (2)
  1. PACLITAXEL [Suspect]
     Indication: BREAST CANCER
     Dosage: 148MG   EVERY 7 DAYS  IV DRIP
     Route: 041
     Dates: start: 20070118, end: 20070315
  2. HERCEPTIN [Concomitant]

REACTIONS (2)
  - BONE PAIN [None]
  - RASH [None]
